FAERS Safety Report 13144398 (Version 1)
Quarter: 2017Q1

REPORT INFORMATION
  Report Type: Report from Study
  Country: None (occurrence: US)
  Receive Date: 20170124
  Receipt Date: 20170124
  Transmission Date: 20170428
  Serious: Yes (Other)
  Sender: FDA-Public Use
  Company Number: US-ABBVIE-17K-163-1842765-00

PATIENT
  Sex: Male

DRUGS (1)
  1. HUMIRA [Suspect]
     Active Substance: ADALIMUMAB
     Indication: CROHN^S DISEASE
     Route: 058
     Dates: end: 20161210

REACTIONS (5)
  - Endodontic procedure [Unknown]
  - Limb injury [Unknown]
  - Fungal skin infection [Unknown]
  - Sinus disorder [Unknown]
  - Impaired healing [Unknown]
